FAERS Safety Report 4623662-2 (Version None)
Quarter: 2005Q1

REPORT INFORMATION
  Report Type: 
  Country: None (occurrence: None)
  Receive Date: 20050331
  Receipt Date: 20050321
  Transmission Date: 20050727
  Serious: Yes (Other)
  Sender: FDA-Public Use
  Company Number: US-JNJFOC-20050305606

PATIENT
  Sex: Female
  Weight: 81.65 kg

DRUGS (7)
  1. REMICADE [Suspect]
     Route: 042
  2. REMICADE [Suspect]
     Route: 042
  3. REMICADE [Suspect]
     Indication: RHEUMATOID ARTHRITIS
     Dosage: ^FOR AT LEAST 4 YEARS, 3 VIALS PER TREATMENT^
     Route: 042
  4. SYNTHROID [Concomitant]
  5. ACTONEL [Concomitant]
  6. PLAVIX [Concomitant]
  7. BLOOD PRESSURE MEDICATIONS [Concomitant]

REACTIONS (4)
  - COLITIS [None]
  - CORONARY ARTERY DISEASE [None]
  - ECZEMA [None]
  - RASH [None]
